FAERS Safety Report 8132175 (Version 2)
Quarter: 2013Q2

REPORT INFORMATION
  Report Type: Report from Study
  Country: BE (occurrence: BE)
  Receive Date: 20110913
  Receipt Date: 20130510
  Transmission Date: 20140414
  Serious: Yes (Hospitalization, Other)
  Sender: FDA-Public Use
  Company Number: BE-BIOGENIDEC-2011BI034422

PATIENT
  Age: 41 Year
  Sex: Male

DRUGS (5)
  1. TYSABRI [Suspect]
     Indication: RELAPSING-REMITTING MULTIPLE SCLEROSIS
     Route: 042
     Dates: start: 20101122, end: 20110904
  2. TOPIRAMATE [Concomitant]
  3. VALPROATE [Concomitant]
  4. VERAPAMIL [Concomitant]
  5. DULOXETINE [Concomitant]

REACTIONS (1)
  - Migraine [Recovered/Resolved]
